FAERS Safety Report 18755550 (Version 1)
Quarter: 2021Q1

REPORT INFORMATION
  Report Type: Spontaneous
  Country: US (occurrence: US)
  Receive Date: 20210115
  Receipt Date: 20210115
  Transmission Date: 20210419
  Serious: Yes (Disabling)
  Sender: FDA-Public Use
  Company Number: None

PATIENT
  Age: 75 Year
  Sex: Female
  Weight: 63 kg

DRUGS (15)
  1. VITAMIN C [Concomitant]
     Active Substance: ASCORBIC ACID
  2. VITAMIN D3 [Concomitant]
     Active Substance: CHOLECALCIFEROL
  3. PROBIOTICS [Concomitant]
     Active Substance: PROBIOTICS NOS
  4. MAGNESIUM [Concomitant]
     Active Substance: MAGNESIUM
  5. VITAMIN K [Concomitant]
     Active Substance: PHYTONADIONE
  6. MULTI?MINERAL [Concomitant]
  7. COSENTYX [Suspect]
     Active Substance: SECUKINUMAB
     Indication: PSORIASIS
     Dosage: ?          QUANTITY:2 INJECTION(S);OTHER FREQUENCY:Q 28 DAYS;?
     Route: 058
     Dates: start: 20200301, end: 20200830
  8. VITAMIN E [Concomitant]
     Active Substance: .ALPHA.-TOCOPHEROL
  9. FOLATE [Concomitant]
     Active Substance: FOLATE SODIUM
  10. CALCIUM [Concomitant]
     Active Substance: CALCIUM
  11. VITAMIN MULTI?B [Concomitant]
  12. METFORMIN [Concomitant]
     Active Substance: METFORMIN HYDROCHLORIDE
  13. VITAMIN A [Concomitant]
     Active Substance: VITAMIN A
  14. FISH OIL [Concomitant]
     Active Substance: FISH OIL
  15. VIT B?12 [Concomitant]

REACTIONS (8)
  - Lymphadenopathy [None]
  - Sinus operation [None]
  - Upper-airway cough syndrome [None]
  - Periodontitis [None]
  - Gingivitis [None]
  - Productive cough [None]
  - Inflammation [None]
  - Viral pharyngitis [None]

NARRATIVE: CASE EVENT DATE: 20200601
